FAERS Safety Report 13621616 (Version 2)
Quarter: 2018Q1

REPORT INFORMATION
  Report Type: Spontaneous
  Country: IT (occurrence: IT)
  Receive Date: 20170607
  Receipt Date: 20180216
  Transmission Date: 20180508
  Serious: Yes (Other)
  Sender: FDA-Public Use
  Company Number: IT-009507513-1706ITA001819

PATIENT
  Age: 79 Year
  Sex: Male

DRUGS (10)
  1. REMERON [Concomitant]
     Active Substance: MIRTAZAPINE
     Route: 048
  2. SPIRIVA [Concomitant]
     Active Substance: TIOTROPIUM BROMIDE MONOHYDRATE
  3. SEQUACOR [Concomitant]
     Active Substance: BISOPROLOL
  4. PLAVIX [Concomitant]
     Active Substance: CLOPIDOGREL BISULFATE
  5. SIVASTIN [Concomitant]
     Active Substance: SIMVASTATIN
  6. SINEMET [Suspect]
     Active Substance: CARBIDOPA\LEVODOPA
     Indication: ACCIDENTAL OVERDOSE
     Dosage: 6 DOSE UNITS, TOTAL
     Route: 048
     Dates: start: 20160107, end: 20160107
  7. APROVEL [Concomitant]
     Active Substance: IRBESARTAN
  8. ANTRA (OMEPRAZOLE) [Concomitant]
     Active Substance: OMEPRAZOLE
  9. NITRODERM [Concomitant]
     Active Substance: NITROGLYCERIN
     Dosage: 5 MG, DAILY
     Route: 062
  10. INDACATEROL [Concomitant]
     Active Substance: INDACATEROL

REACTIONS (2)
  - Postural tremor [Recovering/Resolving]
  - Balance disorder [Recovering/Resolving]

NARRATIVE: CASE EVENT DATE: 20160107
